FAERS Safety Report 7245311-X (Version None)
Quarter: 2011Q1

REPORT INFORMATION
  Report Type: 
  Country: None (occurrence: None)
  Receive Date: 20110126
  Receipt Date: 20110117
  Transmission Date: 20110831
  Serious: Yes (Other)
  Sender: FDA-Public Use
  Company Number: JP-ROCHE-750088

PATIENT
  Sex: Female

DRUGS (2)
  1. HERCEPTIN [Suspect]
     Dosage: NOTE: DOSAGE WAS UNCERTAIN
     Route: 041
  2. TAXOTERE [Suspect]
     Dosage: DOSAGE WAS UNCERTAIN
     Route: 041

REACTIONS (2)
  - PULMONARY INFARCTION [None]
  - PULMONARY HYPERTENSION [None]
